FAERS Safety Report 6336076-4 (Version None)
Quarter: 2009Q3

REPORT INFORMATION
  Report Type: 
  Country: None (occurrence: None)
  Receive Date: 20090901
  Receipt Date: 20071002
  Transmission Date: 20100115
  Serious: Yes (Hospitalization, Other)
  Sender: FDA-Public Use
  Company Number: US-ASTRAZENECA-2006UW23151

PATIENT
  Age: 19893 Day
  Sex: Male

DRUGS (11)
  1. SEROQUEL [Suspect]
     Indication: BIPOLAR DISORDER
     Dosage: 100 MG - 600 MG DAILY
     Route: 048
     Dates: start: 20040110
  2. SEROQUEL [Suspect]
     Indication: DEPRESSION
     Dosage: 100 MG - 600 MG DAILY
     Route: 048
     Dates: start: 20040110
  3. SEROQUEL [Suspect]
     Route: 048
     Dates: start: 20041201
  4. SEROQUEL [Suspect]
     Route: 048
     Dates: start: 20041201
  5. SEROQUEL [Suspect]
     Dosage: 25 TO 100 MG
     Route: 048
     Dates: start: 20050221
  6. SEROQUEL [Suspect]
     Dosage: 25 TO 100 MG
     Route: 048
     Dates: start: 20050221
  7. EFFEXOR XR [Concomitant]
     Dosage: 100 MG, 150 MG FLUCTUATING
     Dates: start: 20050728
  8. PERCOCET [Concomitant]
     Dosage: 10/325 MG 1 TO 2 P.O. 4 TO 6 HOURLY AS NEEDED
     Dates: start: 20060116
  9. BUSPAR [Concomitant]
     Dates: start: 20060306
  10. HYDROCODONE [Concomitant]
     Dates: start: 20060306
  11. LIPITOR [Concomitant]
     Dates: start: 20061101

REACTIONS (7)
  - ANGIOPATHY [None]
  - AORTIC EMBOLUS [None]
  - FEMORAL ARTERIAL STENOSIS [None]
  - FEMORAL ARTERY OCCLUSION [None]
  - POST PROCEDURAL COMPLICATION [None]
  - TYPE 2 DIABETES MELLITUS [None]
  - VASCULAR OPERATION [None]
